FAERS Safety Report 14376031 (Version 2)
Quarter: 2018Q1

REPORT INFORMATION
  Report Type: Report from Study
  Country: KR (occurrence: KR)
  Receive Date: 20180111
  Receipt Date: 20180112
  Transmission Date: 20180509
  Serious: Yes (Other)
  Sender: FDA-Public Use
  Company Number: KR-ASTELLAS-2018US001240

PATIENT
  Age: 78 Year
  Sex: Female

DRUGS (6)
  1. NORVASC [Concomitant]
     Active Substance: AMLODIPINE BESYLATE
     Indication: HYPERTENSION
     Route: 048
     Dates: start: 20170306
  2. COSCA PLUS [Concomitant]
     Indication: HYPERTENSION
     Route: 048
     Dates: start: 20170316
  3. LANSTON [Concomitant]
     Active Substance: LANSOPRAZOLE
     Indication: GASTRITIS
     Route: 048
     Dates: start: 20170328
  4. DICHLOZID [Concomitant]
     Indication: HYPERTENSION
     Dosage: 0.5 DF, UNKNOWN FREQ.
     Route: 048
     Dates: start: 20170306, end: 20170314
  5. MIRABEGRON [Suspect]
     Active Substance: MIRABEGRON
     Indication: HYPERTONIC BLADDER
     Route: 048
     Dates: start: 20170223
  6. COZARTAN [Concomitant]
     Indication: HYPERTENSION
     Route: 048
     Dates: start: 20170306, end: 20170314

REACTIONS (1)
  - Spinal column stenosis [Recovering/Resolving]

NARRATIVE: CASE EVENT DATE: 20170330
